FAERS Safety Report 17457524 (Version 1)
Quarter: 2020Q1

REPORT INFORMATION
  Report Type: Spontaneous
  Country: NO (occurrence: NO)
  Receive Date: 20200225
  Receipt Date: 20200225
  Transmission Date: 20200409
  Serious: Yes (Death, Hospitalization)
  Sender: FDA-Public Use
  Company Number: NO-VISTAPHARM, INC.-VER202002-000279

PATIENT
  Age: 30 Year
  Sex: Male
  Weight: 50 kg

DRUGS (12)
  1. CODEINE [Concomitant]
     Active Substance: CODEINE
     Indication: DUCHENNE MUSCULAR DYSTROPHY
     Dosage: 30 MG
  2. HYDROCODONE AND ACETAMINOPHEN [Suspect]
     Active Substance: ACETAMINOPHEN\HYDROCODONE
     Dosage: THE DOSES WERE GIVEN AS 10 DOSES OF 1 G PARACETAMOL AND 9 DOSES OF 0.5 G IN COMBINATION WITH 30 MG C
  3. LACTULOSE. [Concomitant]
     Active Substance: LACTULOSE
     Indication: CONSTIPATION
     Dosage: UNKNOWN
  4. BISOPROLOL [Concomitant]
     Active Substance: BISOPROLOL
     Indication: CARDIOMYOPATHY
     Dosage: UNKNOWN
  5. HYDROCODONE AND ACETAMINOPHEN [Suspect]
     Active Substance: ACETAMINOPHEN\HYDROCODONE
     Indication: DUCHENNE MUSCULAR DYSTROPHY
     Dosage: 3 GM, ON FIRST DAY
     Route: 042
  6. HYDROCODONE AND ACETAMINOPHEN [Suspect]
     Active Substance: ACETAMINOPHEN\HYDROCODONE
     Dosage: 2 GM, ON DAY 3
     Route: 042
  7. HYDROCODONE AND ACETAMINOPHEN [Suspect]
     Active Substance: ACETAMINOPHEN\HYDROCODONE
     Dosage: 0.5 GM, ON DAY 5 MORNING
     Route: 048
  8. HYDROCODONE AND ACETAMINOPHEN [Suspect]
     Active Substance: ACETAMINOPHEN\HYDROCODONE
     Dosage: 3 GM, ON DAY 4
     Route: 048
  9. RAMIPRIL. [Concomitant]
     Active Substance: RAMIPRIL
     Indication: CARDIOMYOPATHY
     Dosage: UNKNOWN
  10. HYDROCODONE AND ACETAMINOPHEN [Suspect]
     Active Substance: ACETAMINOPHEN\HYDROCODONE
     Dosage: 4 GM, ON DAY 2
     Route: 048
  11. FUROSEMIDE. [Concomitant]
     Active Substance: FUROSEMIDE
     Indication: PRODUCT USED FOR UNKNOWN INDICATION
     Dosage: UNKNOWN
  12. HYDROCODONE AND ACETAMINOPHEN [Suspect]
     Active Substance: ACETAMINOPHEN\HYDROCODONE
     Dosage: 2 GM, ON DAY 3
     Route: 048

REACTIONS (5)
  - Subileus [Unknown]
  - Acute hepatic failure [Fatal]
  - Hypotension [Unknown]
  - Loss of consciousness [Unknown]
  - Toxicity to various agents [Fatal]
